FAERS Safety Report 5574021-X (Version None)
Quarter: 2007Q4

REPORT INFORMATION
  Report Type: 
  Country: None (occurrence: None)
  Receive Date: 20071221
  Receipt Date: 20071210
  Transmission Date: 20080405
  Serious: Yes (Hospitalization)
  Sender: FDA-Public Use
  Company Number: 2007-04114

PATIENT
  Age: 71 Year
  Sex: Male

DRUGS (2)
  1. VELCADE [Suspect]
     Indication: MULTIPLE MYELOMA
     Dosage: INTRAVENOUS
     Route: 042
     Dates: start: 20051210, end: 20060121
  2. DEXAMETHASONE TAB [Concomitant]

REACTIONS (4)
  - ASTHENIA [None]
  - AXONAL NEUROPATHY [None]
  - DEHYDRATION [None]
  - THROMBOCYTOPENIA [None]
